FAERS Safety Report 11973024 (Version 1)
Quarter: 2016Q1

REPORT INFORMATION
  Report Type: Spontaneous
  Country: CA (occurrence: CA)
  Receive Date: 20160128
  Receipt Date: 20160128
  Transmission Date: 20160526
  Serious: Yes (Hospitalization)
  Sender: FDA-Public Use
  Company Number: CA-TEVA-628514ACC

PATIENT
  Age: 87 Year
  Sex: Female
  Weight: 75 kg

DRUGS (21)
  1. COLACE [Concomitant]
     Active Substance: DOCUSATE SODIUM
  2. ZOPICLONE [Concomitant]
     Active Substance: ZOPICLONE
  3. ENTERIC COATED ASA [Concomitant]
     Active Substance: ASPIRIN
  4. PREGABALIN. [Concomitant]
     Active Substance: PREGABALIN
  5. IBUPROFEN. [Suspect]
     Active Substance: IBUPROFEN
     Indication: TOOTH EXTRACTION
     Dosage: FREQUENCY: ONCE
     Route: 048
  6. ATENOLOL TABLETS, BP [Concomitant]
     Active Substance: ATENOLOL
  7. CLOXACILLIN [Suspect]
     Active Substance: CLOXACILLIN
     Indication: TOOTH EXTRACTION
     Dosage: 2000 MILLIGRAM DAILY;
     Route: 048
  8. ACETAMINOPHEN. [Concomitant]
     Active Substance: ACETAMINOPHEN
  9. ALENDRONATE [Concomitant]
     Active Substance: ALENDRONATE SODIUM
  10. DOVOBET GEL [Concomitant]
  11. NITROGLYCERIN. [Concomitant]
     Active Substance: NITROGLYCERIN
  12. CLOXACILLIN [Suspect]
     Active Substance: CLOXACILLIN
     Dosage: FREQUENCY: ONCE
     Route: 048
  13. METFORMIN [Concomitant]
     Active Substance: METFORMIN HYDROCHLORIDE
  14. CARBOCAL D [Concomitant]
     Active Substance: CALCIUM\VITAMIN D
  15. CODEINE [Concomitant]
     Active Substance: CODEINE
  16. LORAZEPAM. [Concomitant]
     Active Substance: LORAZEPAM
  17. IBUPROFEN. [Suspect]
     Active Substance: IBUPROFEN
     Dosage: 2400 MILLIGRAM DAILY;
     Route: 048
  18. ARIMIDEX [Concomitant]
     Active Substance: ANASTROZOLE
  19. ATORVASTATIN CALCIUM. [Concomitant]
     Active Substance: ATORVASTATIN CALCIUM
  20. LOSARTAN/HCTZ [Concomitant]
     Active Substance: HYDROCHLOROTHIAZIDE\LOSARTAN
  21. SENNOSIDES. [Concomitant]
     Active Substance: SENNOSIDES

REACTIONS (7)
  - Aspartate aminotransferase increased [Recovered/Resolved]
  - Gamma-glutamyltransferase increased [Recovered/Resolved]
  - Hepatitis cholestatic [Recovered/Resolved]
  - Jaundice [Recovered/Resolved]
  - Blood alkaline phosphatase increased [Recovered/Resolved]
  - Blood bilirubin increased [Recovered/Resolved]
  - Cholestasis [Recovered/Resolved]
